FAERS Safety Report 8080558-4 (Version None)
Quarter: 2012Q1

REPORT INFORMATION
  Report Type: 
  Country: None (occurrence: None)
  Receive Date: 20120130
  Receipt Date: 20120124
  Transmission Date: 20120608
  Serious: Yes (Other)
  Sender: FDA-Public Use
  Company Number: BR-ABBOTT-11P-020-0884169-00

PATIENT
  Sex: Female
  Weight: 38 kg

DRUGS (5)
  1. CALCIUM + VITAMIN D [Concomitant]
     Indication: BONE DISORDER
     Dosage: 500MG/400UI, ONCE DAILY
     Route: 048
     Dates: start: 20010101
  2. HUMIRA [Suspect]
     Indication: RHEUMATOID ARTHRITIS
     Route: 058
     Dates: start: 20110217
  3. METHOTREXATE [Concomitant]
     Indication: ARTHRITIS
     Route: 048
     Dates: start: 20010101
  4. HUMIRA [Suspect]
     Dates: start: 20120110
  5. ALPRAZOLAM [Concomitant]
     Indication: ANXIOLYTIC THERAPY
     Route: 048
     Dates: start: 20050101

REACTIONS (3)
  - SKIN EXFOLIATION [None]
  - FOOT DEFORMITY [None]
  - PRURITUS GENERALISED [None]
